FAERS Safety Report 6794253-2 (Version None)
Quarter: 2010Q2

REPORT INFORMATION
  Report Type: 
  Country: None (occurrence: None)
  Receive Date: 20100625
  Receipt Date: 20100616
  Transmission Date: 20101027
  Serious: No
  Sender: FDA-Public Use
  Company Number: US-BIOGENIDEC-2010BI016680

PATIENT
  Sex: Male

DRUGS (2)
  1. TYSABRI [Suspect]
     Indication: MULTIPLE SCLEROSIS
     Route: 042
     Dates: start: 20070601, end: 20080331
  2. TYSABRI [Suspect]
     Route: 042
     Dates: start: 20091210

REACTIONS (2)
  - TOOTH DISORDER [None]
  - TOOTH EXTRACTION [None]
